FAERS Safety Report 19264991 (Version 1)
Quarter: 2021Q2

REPORT INFORMATION
  Report Type: Spontaneous
  Country: ES (occurrence: ES)
  Receive Date: 20210517
  Receipt Date: 20210517
  Transmission Date: 20210717
  Serious: Yes (Other)
  Sender: FDA-Public Use
  Company Number: ES-CELGENEUS-ESP-20210305856

PATIENT
  Age: 62 Year
  Sex: Female

DRUGS (2)
  1. ROMIDEPSIN. [Suspect]
     Active Substance: ROMIDEPSIN
     Indication: CUTANEOUS T-CELL LYMPHOMA
     Route: 041
  2. METHOTREXATE. [Suspect]
     Active Substance: METHOTREXATE
     Indication: CUTANEOUS T-CELL LYMPHOMA
     Dosage: 50 MILLIGRAM
     Route: 058

REACTIONS (5)
  - Gastrointestinal toxicity [Unknown]
  - Nausea [Unknown]
  - Hepatotoxicity [Unknown]
  - Pancytopenia [Unknown]
  - Myalgia [Unknown]
